FAERS Safety Report 9173458 (Version 1)
Quarter: 2013Q1

REPORT INFORMATION
  Report Type: Spontaneous
  Country: US (occurrence: US)
  Receive Date: 20130320
  Receipt Date: 20130320
  Transmission Date: 20140127
  Serious: No
  Sender: FDA-Public Use
  Company Number: US-MYLANLABS-2013S1002180

PATIENT
  Age: 71 Year
  Sex: Female
  Weight: 73.94 kg

DRUGS (5)
  1. ATORVASTATIN [Suspect]
     Indication: BLOOD CHOLESTEROL INCREASED
     Route: 048
     Dates: start: 20120229, end: 20130103
  2. CINNAMON /01647501/ [Suspect]
     Dates: start: 201210
  3. CORIANDER [Suspect]
     Dates: start: 201210
  4. CLOVE [Suspect]
     Dates: start: 201210
  5. UNSPECIFIED INGREDIENTS [Suspect]
     Dates: start: 201210

REACTIONS (7)
  - Blood glucose abnormal [Recovered/Resolved]
  - Malaise [Recovered/Resolved]
  - Fatigue [Recovered/Resolved]
  - Asthenia [Recovered/Resolved]
  - Asthenia [Recovered/Resolved]
  - Weight decreased [Recovered/Resolved]
  - Myalgia [Recovered/Resolved]
